FAERS Safety Report 4762679-4 (Version None)
Quarter: 2005Q3

REPORT INFORMATION
  Report Type: 
  Country: None (occurrence: None)
  Receive Date: 20050901
  Receipt Date: 20050504
  Transmission Date: 20060218
  Serious: No
  Sender: FDA-Public Use
  Company Number: FABR-11103

PATIENT
  Age: 51 Year
  Sex: Female
  Weight: 58.0604 kg

DRUGS (6)
  1. FABRAZYME [Suspect]
     Indication: FABRY'S DISEASE
     Dosage: 60 MG Q2WKS IV
     Route: 042
     Dates: start: 20050504
  2. FABRAZYME [Suspect]
     Indication: FABRY'S DISEASE
     Dosage: 30 MG Q2WKS IV
     Route: 042
     Dates: start: 20050406, end: 20050406
  3. FABRAZYME [Suspect]
     Indication: FABRY'S DISEASE
     Dosage: 10 MG Q2WKS IV
     Route: 042
     Dates: start: 20050323, end: 20050323
  4. FABRAZYME [Suspect]
     Indication: FABRY'S DISEASE
     Dosage: 60 MG Q2WKS IV
     Route: 042
     Dates: start: 20050105, end: 20050202
  5. HYDROXYZINE [Concomitant]
  6. IBUPROFEN [Concomitant]

REACTIONS (4)
  - COUGH [None]
  - PARAESTHESIA [None]
  - PHARYNGOLARYNGEAL PAIN [None]
  - PRURITUS [None]
